FAERS Safety Report 5842660-4 (Version None)
Quarter: 2008Q3

REPORT INFORMATION
  Report Type: 
  Country: None (occurrence: None)
  Receive Date: 20080812
  Receipt Date: 20080801
  Transmission Date: 20090109
  Serious: Yes (Hospitalization, Other)
  Sender: FDA-Public Use
  Company Number: US-ELI_LILLY_AND_COMPANY-US200808000340

PATIENT
  Sex: Female

DRUGS (1)
  1. FORTEO [Suspect]

REACTIONS (4)
  - APHONIA [None]
  - ATRIAL FLUTTER [None]
  - HEART RATE INCREASED [None]
  - PHARMACEUTICAL PRODUCT COMPLAINT [None]
